FAERS Safety Report 8850228 (Version 3)
Quarter: 2013Q2

REPORT INFORMATION
  Report Type: Report from Study
  Country: IE (occurrence: IE)
  Receive Date: 20121019
  Receipt Date: 20130607
  Transmission Date: 20140414
  Serious: Yes (Death)
  Sender: FDA-Public Use
  Company Number: IE-CELGENEUS-229-21880-12102019

PATIENT
  Age: 76 Year
  Sex: Female

DRUGS (10)
  1. REVLIMID [Suspect]
     Indication: PLASMA CELL MYELOMA
     Dosage: 15 MILLIGRAM
     Route: 048
     Dates: start: 20111205, end: 20121231
  2. REVLIMID [Suspect]
     Indication: AMYLOIDOSIS
  3. DEXAMETHASONE [Concomitant]
     Indication: PLASMA CELL MYELOMA
     Dosage: 20 MILLIGRAM
     Route: 065
     Dates: start: 20111205
  4. CO-AMOXICILLIN [Concomitant]
     Indication: INFECTION
     Dosage: 1875 MILLIGRAM
     Route: 065
     Dates: start: 20111223, end: 20111230
  5. FUROSEMIDE [Concomitant]
     Indication: FLUID OVERLOAD
     Route: 065
  6. ESOMEPRAZOLE [Concomitant]
     Indication: PROPHYLAXIS AGAINST GASTROINTESTINAL ULCER
     Dosage: 40 MILLIGRAM
     Route: 065
  7. OSTEOFOS [Concomitant]
     Indication: OSTEOPOROSIS
     Route: 065
  8. ROSUVASTATIN [Concomitant]
     Indication: BLOOD CHOLESTEROL INCREASED
     Route: 065
  9. DUROGESIC [Concomitant]
     Indication: PAIN MANAGEMENT
     Route: 062
  10. PREGABALIN [Concomitant]
     Indication: PAIN MANAGEMENT
     Dosage: 300 MILLIGRAM
     Route: 065

REACTIONS (1)
  - Plasma cell myeloma [Fatal]
